FAERS Safety Report 9765766 (Version 1)
Quarter: 2013Q4

REPORT INFORMATION
  Report Type: Spontaneous
  Country: US (occurrence: US)
  Receive Date: 20131217
  Receipt Date: 20131217
  Transmission Date: 20140711
  Serious: No
  Sender: FDA-Public Use
  Company Number: US-GLAXOSMITHKLINE-A1011263A

PATIENT
  Sex: Female

DRUGS (2)
  1. VOTRIENT [Suspect]
     Route: 048
  2. BLOOD PRESSURE MEDICATION [Concomitant]

REACTIONS (2)
  - Hypertension [Unknown]
  - Abdominal pain upper [Unknown]
